FAERS Safety Report 20416220 (Version 2)
Quarter: 2022Q1

REPORT INFORMATION
  Report Type: Spontaneous
  Country: CN (occurrence: CN)
  Receive Date: 20220202
  Receipt Date: 20220211
  Transmission Date: 20220423
  Serious: Yes (Hospitalization, Disabling)
  Sender: FDA-Public Use
  Company Number: CN-NOVARTISPH-NVSC2020CN360679

PATIENT
  Age: 61 Year
  Sex: Female

DRUGS (2)
  1. ACLASTA [Suspect]
     Active Substance: ZOLEDRONIC ACID
     Indication: Osteoporosis
     Dosage: UNK (5ML/100ML)
     Route: 042
     Dates: start: 20191122
  2. UNSPECIFIED INGREDIENT [Concomitant]
     Active Substance: UNSPECIFIED INGREDIENT
     Indication: Product used for unknown indication
     Dosage: UNK
     Route: 065

REACTIONS (13)
  - Osteomyelitis [Recovered/Resolved with Sequelae]
  - Osteonecrosis of jaw [Recovered/Resolved with Sequelae]
  - Swelling face [Recovering/Resolving]
  - Pain in jaw [Recovering/Resolving]
  - Tooth loss [Recovering/Resolving]
  - Oral cavity fistula [Recovering/Resolving]
  - Hypoaesthesia oral [Recovering/Resolving]
  - Periodontal disease [Recovering/Resolving]
  - Noninfective gingivitis [Recovering/Resolving]
  - Tongue erythema [Unknown]
  - Tongue discolouration [Unknown]
  - Heart rate increased [Unknown]
  - Dizziness [Unknown]

NARRATIVE: CASE EVENT DATE: 20200325
